FAERS Safety Report 12645303 (Version 2)
Quarter: 2016Q3

REPORT INFORMATION
  Report Type: Spontaneous
  Country: US (occurrence: US)
  Receive Date: 20160811
  Receipt Date: 20160831
  Transmission Date: 20161109
  Serious: Yes (Death)
  Sender: FDA-Public Use
  Company Number: US-MALLINCKRODT-T201603427

PATIENT
  Sex: Female
  Weight: .52 kg

DRUGS (2)
  1. INOMAX [Suspect]
     Active Substance: NITRIC OXIDE
     Indication: NEONATAL RESPIRATORY FAILURE
  2. INOMAX [Suspect]
     Active Substance: NITRIC OXIDE
     Indication: NEONATAL RESPIRATORY DISTRESS SYNDROME
     Dosage: DOSE SET TO 35 PPM IN ORDER TO OBTAIN A MONITORED DOSE OF 20 PPM
     Dates: start: 20160725, end: 20160726

REACTIONS (9)
  - Sepsis [Fatal]
  - Hypotension [Fatal]
  - Small for dates baby [Fatal]
  - Off label use [Unknown]
  - Anaemia [Fatal]
  - Neonatal respiratory failure [Fatal]
  - Premature baby [Fatal]
  - Thrombocytopenia [Fatal]
  - Shock [Fatal]
